FAERS Safety Report 4716819-3 (Version None)
Quarter: 2005Q3

REPORT INFORMATION
  Report Type: 
  Country: None (occurrence: None)
  Receive Date: 20050714
  Receipt Date: 20050629
  Transmission Date: 20060218
  Serious: Yes (Hospitalization)
  Sender: FDA-Public Use
  Company Number: 215754

PATIENT
  Age: 74 Year
  Sex: Female
  Weight: 56 kg

DRUGS (11)
  1. RITUXIMAB (RITUXIMAB) CONC FOR SOLUTION FOR INFUSION [Suspect]
     Indication: CHRONIC LYMPHOCYTIC LEUKAEMIA
     Dosage: SEE IMAGE
     Route: 042
     Dates: start: 20050125, end: 20050125
  2. RITUXIMAB (RITUXIMAB) CONC FOR SOLUTION FOR INFUSION [Suspect]
     Indication: CHRONIC LYMPHOCYTIC LEUKAEMIA
     Dosage: SEE IMAGE
     Route: 042
     Dates: end: 20050622
  3. FLUDARABINE PHOSPHATE [Suspect]
     Indication: CHRONIC LYMPHOCYTIC LEUKAEMIA
     Dosage: 25 MG/M2, Q4W, INTRAVENOUS
     Route: 042
     Dates: start: 20050126, end: 20050624
  4. CYCLOPHOSPHAMIDE [Suspect]
     Indication: CHRONIC LYMPHOCYTIC LEUKAEMIA
     Dosage: 250 MG/M2, Q4W, INTRAVENOUS
     Route: 042
     Dates: start: 20050126, end: 20050624
  5. ACETAMINOPHEN [Concomitant]
  6. CEFTAZIDIM (CEFTAZIDIME) [Concomitant]
  7. GENTAMICIN [Concomitant]
  8. FILGRASTIM (FILGRASTIM) [Concomitant]
  9. METOCLOPRAMIDE (METOCLOPRAMIDE HYDROCHLORIDE) [Concomitant]
  10. BUTYLSCOPOLAMMONII BROMIDUM (SCOPOLAMINE BUTYLBROMIDE) [Concomitant]
  11. INFESOL (AMINO ACIDS) [Concomitant]

REACTIONS (2)
  - HEPATITIS [None]
  - PNEUMONITIS [None]
